FAERS Safety Report 10220945 (Version 1)
Quarter: 2014Q2

REPORT INFORMATION
  Report Type: Spontaneous
  Country: IT (occurrence: IT)
  Receive Date: 20140606
  Receipt Date: 20140606
  Transmission Date: 20141212
  Serious: Yes (Hospitalization)
  Sender: FDA-Public Use
  Company Number: IT-MYLANLABS-2014S1012306

PATIENT
  Age: 24 Year
  Sex: Female

DRUGS (2)
  1. AMOXICILLIN TRIHYDRATE [Suspect]
     Indication: PRODUCT USED FOR UNKNOWN INDICATION
     Dosage: 2 G DAILY
     Route: 048
     Dates: start: 20140420, end: 20140427
  2. KETOPROFEN LYSINE [Suspect]
     Indication: PRODUCT USED FOR UNKNOWN INDICATION
     Dosage: 8 DF DAILY
     Route: 048
     Dates: start: 20140420, end: 20140427

REACTIONS (2)
  - Drug abuse [Not Recovered/Not Resolved]
  - Systemic sclerosis [Not Recovered/Not Resolved]
